FAERS Safety Report 10513791 (Version 2)
Quarter: 2014Q4

REPORT INFORMATION
  Report Type: Spontaneous
  Country: IT (occurrence: IT)
  Receive Date: 20141013
  Receipt Date: 20141020
  Transmission Date: 20150528
  Serious: Yes (Hospitalization, Other)
  Sender: FDA-Public Use
  Company Number: IT-PFIZER INC-2014278683

PATIENT
  Age: 70 Year
  Sex: Male
  Weight: 65 kg

DRUGS (2)
  1. LYRICA [Suspect]
     Active Substance: PREGABALIN
     Indication: PLEURAL MESOTHELIOMA MALIGNANT
     Dosage: 75 MG, DAILY
     Route: 048
     Dates: start: 20141001, end: 20141003
  2. PALEXIA [Interacting]
     Active Substance: TAPENTADOL HYDROCHLORIDE
     Indication: PLEURAL MESOTHELIOMA MALIGNANT
     Dosage: 100 MG, DAILY
     Route: 048
     Dates: start: 20141001, end: 20141003

REACTIONS (5)
  - Asthenia [Unknown]
  - Confusional state [Unknown]
  - Tremor [Unknown]
  - Product use issue [Unknown]
  - Drug interaction [Unknown]

NARRATIVE: CASE EVENT DATE: 20141004
